FAERS Safety Report 24962610 (Version 2)
Quarter: 2025Q1

REPORT INFORMATION
  Report Type: Report from Study
  Country: CA (occurrence: CA)
  Receive Date: 20250212
  Receipt Date: 20250228
  Transmission Date: 20250408
  Serious: Yes (Other)
  Sender: ABBVIE
  Company Number: CA-ABBVIE-6128491

PATIENT
  Sex: Female

DRUGS (4)
  1. QULIPTA [Suspect]
     Active Substance: ATOGEPANT
     Indication: Migraine
     Dosage: STRENGTH: 60 MG, FREQUENCY WAS DAILY?60MG PO/ONCE DAILY
     Route: 048
     Dates: start: 20241230
  2. QULIPTA [Suspect]
     Active Substance: ATOGEPANT
     Indication: Migraine
     Dosage: STRENGTH: 60 MG, FREQUENCY WAS DAILY?60MG PO/ONCE DAILY?END DATE WAS 2025
     Route: 048
     Dates: start: 20250117
  3. BOTOX [Suspect]
     Active Substance: ONABOTULINUMTOXINA
     Indication: Migraine
     Route: 065
     Dates: start: 20200601, end: 20200601
  4. BOTOX [Suspect]
     Active Substance: ONABOTULINUMTOXINA
     Indication: Migraine
     Route: 065
     Dates: start: 20210316, end: 20210316

REACTIONS (4)
  - Mitral valve incompetence [Not Recovered/Not Resolved]
  - Mitral valve prolapse [Unknown]
  - Palpitations [Unknown]
  - Discomfort [Unknown]

NARRATIVE: CASE EVENT DATE: 20241230
